FAERS Safety Report 7627305-5 (Version None)
Quarter: 2011Q3

REPORT INFORMATION
  Report Type: 
  Country: None (occurrence: None)
  Receive Date: 20110714
  Receipt Date: 20110629
  Transmission Date: 20111222
  Serious: Yes (Hospitalization, Other)
  Sender: FDA-Public Use
  Company Number: GB-1186928

PATIENT
  Sex: Female

DRUGS (1)
  1. TRAVATAN [Suspect]
     Dosage: (OPHTHALMIC)
     Route: 047
     Dates: start: 20110101

REACTIONS (1)
  - LARGE INTESTINAL ULCER [None]
